FAERS Safety Report 9916398 (Version 5)
Quarter: 2014Q1

REPORT INFORMATION
  Report Type: Report from Study
  Country: AU (occurrence: AU)
  Receive Date: 20140221
  Receipt Date: 20140310
  Transmission Date: 20141002
  Serious: Yes (Hospitalization, Other)
  Sender: FDA-Public Use
  Company Number: PHHY2014AU017878

PATIENT
  Age: 40 Year
  Sex: Male

DRUGS (6)
  1. CLOZARIL [Suspect]
     Dosage: 300 MG, UNK
     Dates: start: 20131209
  2. CLOZARIL [Suspect]
     Dosage: 250 MG, UNK
     Dates: start: 20140114
  3. CLOZARIL [Suspect]
     Dosage: 300 MG, UNK
     Dates: start: 20140120
  4. CLOZARIL [Suspect]
     Dosage: 600 MG, UNK
     Dates: start: 20140129
  5. CLOZARIL [Suspect]
     Dosage: 300 MG, UNK
     Dates: start: 20140203, end: 20140210
  6. MIRTAZAPINE [Concomitant]
     Dosage: UNK

REACTIONS (7)
  - Febrile neutropenia [Unknown]
  - Malaise [Unknown]
  - Sepsis [Unknown]
  - Agranulocytosis [Unknown]
  - White blood cell count decreased [Recovered/Resolved]
  - Neutrophil count decreased [Recovered/Resolved]
  - Pneumonia [Unknown]
